FAERS Safety Report 14809380 (Version 2)
Quarter: 2018Q3

REPORT INFORMATION
  Report Type: Report from Study
  Country: US (occurrence: US)
  Receive Date: 20180425
  Receipt Date: 20180719
  Transmission Date: 20181010
  Serious: No
  Sender: FDA-Public Use
  Company Number: US-AMGEN-USASL2018030073

PATIENT
  Age: 61 Year
  Sex: Male
  Weight: 96.6 kg

DRUGS (1)
  1. REPATHA [Suspect]
     Active Substance: EVOLOCUMAB
     Indication: HYPERCHOLESTEROLAEMIA
     Dosage: 140 MG, Q2WK
     Route: 065
     Dates: start: 20180226

REACTIONS (10)
  - Gait disturbance [Unknown]
  - Influenza like illness [Recovered/Resolved]
  - Musculoskeletal pain [Unknown]
  - Nasal congestion [Unknown]
  - Joint stiffness [Recovered/Resolved]
  - Arthralgia [Unknown]
  - Myalgia [Unknown]
  - Mobility decreased [Unknown]
  - Chest pain [Unknown]
  - Dysstasia [Unknown]

NARRATIVE: CASE EVENT DATE: 2018
